FAERS Safety Report 20634781 (Version 1)
Quarter: 2022Q1

REPORT INFORMATION
  Report Type: Report from Study
  Country: CA (occurrence: CA)
  Receive Date: 20220325
  Receipt Date: 20220325
  Transmission Date: 20220423
  Serious: Yes (Hospitalization)
  Sender: FDA-Public Use
  Company Number: CA-JNJFOC-20220343423

PATIENT
  Age: 65 Year
  Sex: Female
  Weight: 55.9 kg

DRUGS (2)
  1. REMICADE [Suspect]
     Active Substance: INFLIXIMAB
     Indication: Crohn^s disease
     Dosage: ON 18-MAR-2022, THE PATIENT RECEIVED 19TH 300MG DOSE OF REMICADE INFUSION.
     Route: 042
     Dates: start: 20190803
  2. PANTOPRAZOLE SODIUM [Concomitant]
     Active Substance: PANTOPRAZOLE SODIUM
     Indication: Gastrooesophageal reflux disease
     Route: 065

REACTIONS (1)
  - Ileectomy [Recovered/Resolved]

NARRATIVE: CASE EVENT DATE: 20220223
